FAERS Safety Report 9097902 (Version 2)
Quarter: 2013Q1

REPORT INFORMATION
  Report Type: Spontaneous
  Country: US (occurrence: US)
  Receive Date: 20130212
  Receipt Date: 20130313
  Transmission Date: 20140127
  Serious: No
  Sender: FDA-Public Use
  Company Number: US-PFIZER INC-2013051773

PATIENT
  Sex: Female

DRUGS (5)
  1. FLECTOR [Suspect]
     Indication: LIMB INJURY
     Dosage: UNK
     Dates: start: 20130201
  2. FLECTOR [Suspect]
     Indication: LIGAMENT SPRAIN
  3. LIPITOR [Concomitant]
     Dosage: UNK
  4. EFFEXOR [Concomitant]
     Dosage: UNK
  5. ASPIRIN [Concomitant]
     Dosage: UNK

REACTIONS (4)
  - Erythema [Unknown]
  - Pain [Unknown]
  - Discomfort [Unknown]
  - Drug ineffective [Unknown]
